FAERS Safety Report 4551832-0 (Version None)
Quarter: 2005Q1

REPORT INFORMATION
  Report Type: 
  Country: None (occurrence: None)
  Receive Date: 20050111
  Receipt Date: 20050104
  Transmission Date: 20050727
  Serious: Yes (Hospitalization)
  Sender: FDA-Public Use
  Company Number: 2005GB00008

PATIENT
  Age: 73 Year
  Sex: Male

DRUGS (2)
  1. QUETIAPINE [Suspect]
  2. EXELON [Suspect]
     Indication: DEMENTIA

REACTIONS (4)
  - BLOOD BILIRUBIN INCREASED [None]
  - CONDITION AGGRAVATED [None]
  - LIVER FUNCTION TEST ABNORMAL [None]
  - SKIN DISCOLOURATION [None]
